FAERS Safety Report 6209934-9 (Version None)
Quarter: 2009Q2

REPORT INFORMATION
  Report Type: 
  Country: None (occurrence: None)
  Receive Date: 20090528
  Receipt Date: 20090528
  Transmission Date: 20091009
  Serious: Yes (Hospitalization)
  Sender: FDA-Public Use
  Company Number: None

PATIENT
  Sex: Male
  Weight: 65.5 kg

DRUGS (5)
  1. METHOTREXATE [Suspect]
     Dosage: 30 MG
     Dates: end: 20090316
  2. ONCASPAR [Suspect]
     Dosage: 4050 IU
     Dates: end: 20090324
  3. CYCLOPHOSPHAMIDE [Suspect]
     Dosage: 1610 MG
     Dates: end: 20090309
  4. CYTARABINE [Suspect]
     Dosage: 960 MG
     Dates: end: 20090322
  5. MERCAPTOPURINE [Suspect]
     Dosage: 1400 MG
     Dates: end: 20090323

REACTIONS (4)
  - HEMIPLEGIA [None]
  - LEUKOENCEPHALOPATHY [None]
  - NEUROLOGICAL SYMPTOM [None]
  - PYREXIA [None]
